FAERS Safety Report 25044031 (Version 1)
Quarter: 2025Q1

REPORT INFORMATION
  Report Type: Report from Study
  Country: FR (occurrence: FR)
  Receive Date: 20250306
  Receipt Date: 20250306
  Transmission Date: 20250408
  Serious: Yes (Other)
  Sender: TEVA
  Company Number: FR-TEVA-VS-3304847

PATIENT
  Age: 63 Year
  Sex: Female

DRUGS (15)
  1. LENALIDOMIDE [Suspect]
     Active Substance: LENALIDOMIDE
     Indication: Myelodysplastic syndrome
     Route: 065
  2. BUSULFAN [Concomitant]
     Active Substance: BUSULFAN
     Indication: Bone marrow conditioning regimen
     Route: 065
  3. CYTARABINE\DAUNORUBICIN [Suspect]
     Active Substance: CYTARABINE\DAUNORUBICIN
     Indication: Bone marrow conditioning regimen
     Dosage: ON DAY DAYS 1, 3 AND 5
     Route: 042
  4. CYTARABINE\DAUNORUBICIN [Suspect]
     Active Substance: CYTARABINE\DAUNORUBICIN
     Indication: Bone marrow conditioning regimen
     Dosage: ON DAY -14 AND -12
     Route: 042
  5. FLUDARABINE [Suspect]
     Active Substance: FLUDARABINE PHOSPHATE
     Indication: Bone marrow conditioning regimen
     Dosage: FROM DAYS -5 TO -2
     Route: 042
  6. ERYTHROPOIETIN [Suspect]
     Active Substance: ERYTHROPOIETIN
     Indication: Myelodysplastic syndrome
     Route: 065
  7. DEFIBROTIDE [Concomitant]
     Active Substance: DEFIBROTIDE (BOVINE)
     Indication: Venoocclusive liver disease
     Route: 065
  8. MYCOPHENOLATE MOFETIL [Concomitant]
     Active Substance: MYCOPHENOLATE MOFETIL
     Indication: Prophylaxis against graft versus host disease
     Dosage: FROM DAY +1 TO +35
     Route: 065
  9. CYCLOSPORINE [Concomitant]
     Active Substance: CYCLOSPORINE
     Indication: Prophylaxis against graft versus host disease
     Route: 065
  10. CYCLOPHOSPHAMIDE [Concomitant]
     Active Substance: CYCLOPHOSPHAMIDE
     Indication: Prophylaxis against graft versus host disease
     Dosage: ON DAY +3 AND +4
     Route: 065
  11. AZACITIDINE [Suspect]
     Active Substance: AZACITIDINE
     Indication: Myelodysplastic syndrome
     Dosage: FOR 5 DAYS; TOTAL 6 CYCLES
     Route: 065
  12. TREOSULFAN [Suspect]
     Active Substance: TREOSULFAN
     Indication: Bone marrow conditioning regimen
     Dosage: FROM DAYS -6 TO -4
     Route: 042
  13. ACYCLOVIR [Concomitant]
     Active Substance: ACYCLOVIR
     Indication: Prophylaxis
     Route: 065
  14. POSACONAZOLE [Concomitant]
     Active Substance: POSACONAZOLE
     Indication: Antifungal prophylaxis
     Route: 065
  15. FLUDARABINE [Concomitant]
     Active Substance: FLUDARABINE PHOSPHATE
     Indication: Bone marrow conditioning regimen
     Route: 065

REACTIONS (3)
  - Mucosal inflammation [Unknown]
  - Enterocolitis [Unknown]
  - Drug ineffective [Unknown]
